FAERS Safety Report 20554123 (Version 2)
Quarter: 2022Q1

REPORT INFORMATION
  Report Type: Report from Study
  Country: US (occurrence: US)
  Receive Date: 20220304
  Receipt Date: 20220315
  Transmission Date: 20220423
  Serious: Yes (Hospitalization, Other)
  Sender: FDA-Public Use
  Company Number: US-BRISTOL-MYERS SQUIBB COMPANY-BMS-2022-030457

PATIENT
  Age: 56 Year
  Sex: Female
  Weight: 102.7 kg

DRUGS (3)
  1. NIVOLUMAB [Suspect]
     Active Substance: NIVOLUMAB
     Indication: Uterine leiomyosarcoma
     Dosage: 3 MILLIGRAM/KILOGRAM, Q3WK
     Route: 042
  2. IPILIMUMAB [Suspect]
     Active Substance: IPILIMUMAB
     Indication: Uterine leiomyosarcoma
     Dosage: 1 MILLIGRAM/KILOGRAM, Q3WK
     Route: 042
     Dates: start: 20220203, end: 20220203
  3. CABOZANTINIB [Suspect]
     Active Substance: CABOZANTINIB
     Indication: Uterine leiomyosarcoma
     Dosage: 40 MILLIGRAM, QD
     Route: 048
     Dates: start: 20220203, end: 20220221

REACTIONS (1)
  - Pneumothorax [Recovering/Resolving]

NARRATIVE: CASE EVENT DATE: 20220224
